FAERS Safety Report 10136982 (Version 1)
Quarter: 2014Q2

REPORT INFORMATION
  Report Type: Spontaneous
  Country: US (occurrence: None)
  Receive Date: 20140428
  Receipt Date: 20140428
  Transmission Date: 20141212
  Serious: Yes (Hospitalization)
  Sender: FDA-Public Use
  Company Number: None

PATIENT
  Age: 43 Year
  Sex: Female
  Weight: 52.16 kg

DRUGS (2)
  1. BOTOX [Suspect]
     Indication: TENSION HEADACHE
     Dosage: 200 UNITS WITH 1% LIDOCAINE ?INTO THE MUSCLE
     Dates: start: 20140321, end: 20140321
  2. BOTOX [Suspect]
     Indication: MUSCLE TIGHTNESS
     Dosage: 200 UNITS WITH 1% LIDOCAINE ?INTO THE MUSCLE
     Dates: start: 20140321, end: 20140321

REACTIONS (7)
  - Asthenia [None]
  - Paraesthesia [None]
  - Dysphagia [None]
  - Abasia [None]
  - Fatigue [None]
  - Headache [None]
  - Hypoaesthesia [None]
